FAERS Safety Report 24679922 (Version 1)
Quarter: 2024Q4

REPORT INFORMATION
  Report Type: Spontaneous
  Country: CN (occurrence: CN)
  Receive Date: 20241129
  Receipt Date: 20241129
  Transmission Date: 20250114
  Serious: Yes (Other)
  Sender: MERCK
  Company Number: CN-009507513-2411CHN007664

PATIENT
  Age: 60 Year
  Sex: Male

DRUGS (11)
  1. PEMBROLIZUMAB [Suspect]
     Active Substance: PEMBROLIZUMAB
     Indication: Head and neck cancer
     Dosage: 200 MILLIGRAM, Q3W
     Route: 042
     Dates: start: 20230721, end: 20230721
  2. PEMBROLIZUMAB [Suspect]
     Active Substance: PEMBROLIZUMAB
     Indication: Sarcomatoid carcinoma
     Dosage: 200 MILLIGRAM, Q3W
     Route: 042
     Dates: start: 20230811, end: 20230811
  3. PEMBROLIZUMAB [Suspect]
     Active Substance: PEMBROLIZUMAB
     Dosage: 200 MILLIGRAM, Q3W
     Route: 042
     Dates: start: 20230903, end: 20230903
  4. PEMBROLIZUMAB [Suspect]
     Active Substance: PEMBROLIZUMAB
     Dosage: 200 MILLIGRAM, Q3W
     Route: 042
     Dates: start: 20230924, end: 20230924
  5. PEMBROLIZUMAB [Suspect]
     Active Substance: PEMBROLIZUMAB
     Dosage: 200 MILLIGRAM, Q3W
     Route: 042
     Dates: start: 20231016, end: 20231016
  6. PEMBROLIZUMAB [Suspect]
     Active Substance: PEMBROLIZUMAB
     Dosage: UNK
     Route: 065
     Dates: start: 20231128
  7. NIMOTUZUMAB [Suspect]
     Active Substance: NIMOTUZUMAB
     Indication: Head and neck cancer
     Dosage: 400 MILLIGRAM, Q3W
     Route: 042
     Dates: start: 20230721, end: 20230721
  8. NIMOTUZUMAB [Suspect]
     Active Substance: NIMOTUZUMAB
     Dosage: 400 MILLIGRAM, Q3W
     Route: 042
     Dates: start: 20230811, end: 20230811
  9. NIMOTUZUMAB [Suspect]
     Active Substance: NIMOTUZUMAB
     Dosage: 400 MILLIGRAM, Q3W
     Route: 042
     Dates: start: 20230903, end: 20230903
  10. NIMOTUZUMAB [Suspect]
     Active Substance: NIMOTUZUMAB
     Dosage: 400 MILLIGRAM, Q3W
     Route: 042
     Dates: start: 20230924, end: 20230924
  11. NIMOTUZUMAB [Suspect]
     Active Substance: NIMOTUZUMAB
     Dosage: 400 MILLIGRAM, Q3W
     Route: 042
     Dates: start: 20231016, end: 20231016

REACTIONS (4)
  - Sarcomatoid carcinoma [Recovering/Resolving]
  - Drug resistance [Unknown]
  - Product use in unapproved indication [Unknown]
  - Product use in unapproved indication [Unknown]

NARRATIVE: CASE EVENT DATE: 20230101
